FAERS Safety Report 18979579 (Version 1)
Quarter: 2021Q1

REPORT INFORMATION
  Report Type: Spontaneous
  Country: CO (occurrence: CO)
  Receive Date: 20210308
  Receipt Date: 20210308
  Transmission Date: 20210420
  Serious: Yes (Other)
  Sender: FDA-Public Use
  Company Number: CO-AMGEN-COLSP2021033395

PATIENT
  Age: 38 Year
  Sex: Male
  Weight: 52.7 kg

DRUGS (5)
  1. MVASI [Suspect]
     Active Substance: BEVACIZUMAB-AWWB
     Indication: RECTAL CANCER
     Dosage: 327 MILLIGRAM, Q2WK (EVERY 15 DAY)
     Route: 042
     Dates: start: 20210120, end: 20210203
  2. FOLFOX [Concomitant]
     Active Substance: FLUOROURACIL\LEUCOVORIN CALCIUM\OXALIPLATIN
     Dosage: UNK
  3. CALCIUM FOLINATE [Concomitant]
     Active Substance: LEUCOVORIN CALCIUM
     Indication: RECTAL CANCER
     Dosage: 628 MILLIGRAM, Q2WK (EVERY 15 DAY)
     Route: 042
     Dates: start: 20201222
  4. FLUOROURACIL. [Concomitant]
     Active Substance: FLUOROURACIL
     Indication: RECTAL CANCER
     Dosage: 4396 MILLIGRAM, Q2WK (EVERY 15 DAY)
     Route: 042
     Dates: start: 20201222
  5. OXALIPLATIN. [Concomitant]
     Active Substance: OXALIPLATIN
     Indication: NEOPLASM MALIGNANT
     Dosage: 133 MILLIGRAM, Q2WK (EVERY 15 DAY)
     Route: 042
     Dates: start: 20201222

REACTIONS (2)
  - Enterovesical fistula [Recovering/Resolving]
  - Urinary fistula [Recovering/Resolving]

NARRATIVE: CASE EVENT DATE: 20210208
